FAERS Safety Report 22080253 (Version 2)
Quarter: 2023Q2

REPORT INFORMATION
  Report Type: Spontaneous
  Country: US (occurrence: US)
  Receive Date: 20230309
  Receipt Date: 20230531
  Transmission Date: 20230722
  Serious: Yes (Other)
  Sender: FDA-Public Use
  Company Number: US-ELI_LILLY_AND_COMPANY-US202302009746

PATIENT
  Age: 81 Year
  Sex: Female

DRUGS (1)
  1. EVISTA [Suspect]
     Active Substance: RALOXIFENE HYDROCHLORIDE
     Indication: Spinal fracture
     Dosage: UNK, UNKNOWN
     Route: 065
     Dates: end: 202207

REACTIONS (4)
  - Fracture [Unknown]
  - Drug resistance [Unknown]
  - Osteoporosis [Unknown]
  - Drug ineffective [Unknown]
